FAERS Safety Report 8870692 (Version 1)
Quarter: 2012Q4

REPORT INFORMATION
  Report Type: Spontaneous
  Country: US (occurrence: None)
  Receive Date: 20121026
  Receipt Date: 20121026
  Transmission Date: 20130627
  Serious: Yes (Other)
  Sender: FDA-Public Use
  Company Number: None

PATIENT
  Age: 24 Year
  Sex: Female

DRUGS (1)
  1. TERBUTALINE [Suspect]
     Indication: PREMATURE LABOR
     Dates: start: 20121006, end: 20121006

REACTIONS (4)
  - Cough [None]
  - Tachycardia [None]
  - Flushing [None]
  - Presyncope [None]
